FAERS Safety Report 22171425 (Version 1)
Quarter: 2023Q2

REPORT INFORMATION
  Report Type: Report from Study
  Country: IE (occurrence: IE)
  Receive Date: 20230404
  Receipt Date: 20230404
  Transmission Date: 20230721
  Serious: Yes (Death, Hospitalization, Other)
  Sender: FDA-Public Use
  Company Number: IE-AstraZeneca-2023A017825

PATIENT
  Age: 378 Day
  Sex: Male

DRUGS (8)
  1. SYNAGIS [Suspect]
     Active Substance: PALIVIZUMAB
     Indication: Encephalocele
     Dosage: 15 MG/KG EVERY 4 WEEKS
     Route: 030
     Dates: start: 20230117, end: 20230309
  2. SYNAGIS [Suspect]
     Active Substance: PALIVIZUMAB
     Dosage: 15 MG/KG EVERY 4 WEEKS
     Route: 030
     Dates: start: 20221216
  3. SYNAGIS [Suspect]
     Active Substance: PALIVIZUMAB
     Dosage: 15 MG/KG EVERY 4 WEEKS
     Route: 030
     Dates: start: 20230309, end: 20230309
  4. GABAPENTIN [Concomitant]
     Active Substance: GABAPENTIN
     Indication: Product used for unknown indication
     Dosage: UNKNOWN
     Route: 050
  5. OMEPRAZOLE [Concomitant]
     Active Substance: OMEPRAZOLE
     Indication: Product used for unknown indication
     Dosage: UNKNOWN
     Route: 050
  6. CLONIDINE [Concomitant]
     Active Substance: CLONIDINE
     Indication: Product used for unknown indication
     Dosage: UNKNOWN
     Route: 050
  7. MIDAZOLAM [Concomitant]
     Active Substance: MIDAZOLAM
     Indication: Product used for unknown indication
     Dosage: UNKNOWN
     Route: 050
  8. LEVETIRACETAM [Concomitant]
     Active Substance: LEVETIRACETAM
     Indication: Product used for unknown indication
     Dosage: UNKNOWN
     Route: 050

REACTIONS (4)
  - Respiratory tract infection [Unknown]
  - Off label use [Unknown]
  - Inappropriate schedule of product administration [Unknown]
  - Death [Fatal]

NARRATIVE: CASE EVENT DATE: 20230117
